FAERS Safety Report 7945218-6 (Version None)
Quarter: 2011Q4

REPORT INFORMATION
  Report Type: 
  Country: None (occurrence: None)
  Receive Date: 20111129
  Receipt Date: 20110411
  Transmission Date: 20120403
  Serious: No
  Sender: FDA-Public Use
  Company Number: US-GLAXOSMITHKLINE-A0922450A

PATIENT
  Age: 62 Year
  Sex: Female

DRUGS (6)
  1. LEVOTHYROXINE SODIUM [Concomitant]
  2. FLOVENT [Suspect]
     Indication: ASTHMA
     Dosage: 1PUFF TWICE PER DAY
     Route: 055
     Dates: start: 20110301, end: 20110401
  3. DIOVAN [Concomitant]
  4. FISH OIL [Concomitant]
     Indication: SUPPLEMENTATION THERAPY
  5. CALCIUM SUPPLEMENT [Concomitant]
  6. ASPIRIN [Concomitant]

REACTIONS (5)
  - COUGH [None]
  - RESPIRATORY TRACT IRRITATION [None]
  - DRUG INEFFECTIVE [None]
  - PRODUCT QUALITY ISSUE [None]
  - INCREASED UPPER AIRWAY SECRETION [None]
